FAERS Safety Report 8274699-6 (Version None)
Quarter: 2012Q2

REPORT INFORMATION
  Report Type: 
  Country: None (occurrence: None)
  Receive Date: 20120411
  Receipt Date: 20120403
  Transmission Date: 20120825
  Serious: Yes (Death, Hospitalization)
  Sender: FDA-Public Use
  Company Number: US-ACTELION-A-NJ2011-54409

PATIENT

DRUGS (5)
  1. OXYGEN [Concomitant]
  2. TRACLEER [Suspect]
     Indication: PULMONARY ARTERIAL HYPERTENSION
     Dosage: UNK
     Route: 048
     Dates: start: 20040603
  3. CALCIUM CHANNEL BLOCKERS [Concomitant]
  4. COUMADIN [Concomitant]
  5. VENTAVIS [Suspect]
     Indication: PULMONARY ARTERIAL HYPERTENSION
     Dosage: 5 MCG, QID
     Route: 055
     Dates: start: 20090929, end: 20110927

REACTIONS (9)
  - SARCOIDOSIS [None]
  - DYSPNOEA [None]
  - ENDOTRACHEAL INTUBATION [None]
  - RESPIRATORY FAILURE [None]
  - MALAISE [None]
  - PNEUMONIA [None]
  - HYPOXIA [None]
  - PULMONARY HYPERTENSION [None]
  - RIGHT VENTRICULAR FAILURE [None]
